FAERS Safety Report 9424564 (Version 1)
Quarter: 2013Q3

REPORT INFORMATION
  Report Type: Spontaneous
  Country: US (occurrence: None)
  Receive Date: 20130725
  Receipt Date: 20130725
  Transmission Date: 20140515
  Serious: Yes (Other)
  Sender: FDA-Public Use
  Company Number: 2013SA072932

PATIENT
  Age: 63 Year
  Sex: Male

DRUGS (1)
  1. ICY HOT [Suspect]
     Indication: BACK PAIN

REACTIONS (2)
  - Thermal burn [None]
  - Blister [None]
